FAERS Safety Report 10261515 (Version 2)
Quarter: 2014Q2

REPORT INFORMATION
  Report Type: Spontaneous
  Country: US (occurrence: US)
  Receive Date: 20140626
  Receipt Date: 20140626
  Transmission Date: 20141212
  Serious: No
  Sender: FDA-Public Use
  Company Number: US-MYLANLABS-2013S1023629

PATIENT
  Age: 77 Year
  Sex: Female
  Weight: 57.61 kg

DRUGS (4)
  1. PERFOROMIST (FORMOTEROL FUMARATE) INHALATION SOLUTION [Suspect]
     Indication: CHRONIC OBSTRUCTIVE PULMONARY DISEASE
     Route: 055
     Dates: start: 20131015, end: 20131016
  2. BUDESONIDE [Concomitant]
  3. ATROVENT [Concomitant]
  4. PROAIR /00139502/ [Concomitant]

REACTIONS (1)
  - Nausea [Recovered/Resolved]
